FAERS Safety Report 8326561-8 (Version None)
Quarter: 2012Q2

REPORT INFORMATION
  Report Type: 
  Country: None (occurrence: None)
  Receive Date: 20120501
  Receipt Date: 20120420
  Transmission Date: 20120825
  Serious: Yes (Other)
  Sender: FDA-Public Use
  Company Number: US-JNJFOC-20120411127

PATIENT
  Age: 26 Year
  Sex: Male

DRUGS (4)
  1. AMPHOTERICIN B [Suspect]
     Route: 042
  2. ANTIRETROVIRALS (NOS) [Suspect]
     Indication: PRODUCT USED FOR UNKNOWN INDICATION
     Route: 065
  3. AMPHOTERICIN B [Suspect]
     Indication: HISTOPLASMOSIS
     Route: 065
  4. ITRACONAZOLE [Suspect]
     Indication: HISTOPLASMOSIS
     Route: 048

REACTIONS (3)
  - HISTOPLASMOSIS [None]
  - SMALL INTESTINAL OBSTRUCTION [None]
  - SMALL INTESTINAL PERFORATION [None]
